FAERS Safety Report 7010727-3 (Version None)
Quarter: 2010Q3

REPORT INFORMATION
  Report Type: 
  Country: None (occurrence: None)
  Receive Date: 20100923
  Receipt Date: 20100915
  Transmission Date: 20110219
  Serious: Yes (Other)
  Sender: FDA-Public Use
  Company Number: US-ABBOTT-10P-163-0665508-00

PATIENT
  Sex: Male
  Weight: 88.984 kg

DRUGS (5)
  1. TRICOR [Suspect]
     Indication: BLOOD TRIGLYCERIDES INCREASED
     Dates: start: 20100617, end: 20100812
  2. METFORMIN [Concomitant]
     Indication: DIABETES MELLITUS
  3. JENUVIA [Concomitant]
     Indication: DIABETES MELLITUS
  4. LISINOPRIL [Concomitant]
     Indication: HYPERTENSION
  5. LISINOPRIL [Concomitant]
     Indication: PROPHYLAXIS

REACTIONS (4)
  - OEDEMA PERIPHERAL [None]
  - RETINAL OEDEMA [None]
  - RETINOPATHY [None]
  - VISION BLURRED [None]
